FAERS Safety Report 7463895-3 (Version None)
Quarter: 2011Q2

REPORT INFORMATION
  Report Type: 
  Country: None (occurrence: None)
  Receive Date: 20110506
  Receipt Date: 20110502
  Transmission Date: 20111010
  Serious: Yes (Hospitalization)
  Sender: FDA-Public Use
  Company Number: BR-US-EMD SERONO, INC.-7022481

PATIENT
  Sex: Female

DRUGS (7)
  1. AMPLICTIL [Concomitant]
  2. SIMVASTATIN [Concomitant]
  3. LOVAZA [Concomitant]
  4. CARBAMAZEPINE [Concomitant]
  5. TEGRETOL [Concomitant]
  6. SERTRALINE [Concomitant]
  7. REBIF [Suspect]
     Indication: RELAPSING-REMITTING MULTIPLE SCLEROSIS
     Route: 058
     Dates: start: 20080501

REACTIONS (3)
  - ASTHENIA [None]
  - PAIN [None]
  - CONVULSION [None]
